APPROVED DRUG PRODUCT: PYRIDOSTIGMINE BROMIDE
Active Ingredient: PYRIDOSTIGMINE BROMIDE
Strength: 60MG
Dosage Form/Route: TABLET;ORAL
Application: A211181 | Product #001 | TE Code: AB
Applicant: MLV PHARMA LLC
Approved: Jul 20, 2018 | RLD: No | RS: No | Type: RX